FAERS Safety Report 7311779-3 (Version None)
Quarter: 2011Q1

REPORT INFORMATION
  Report Type: 
  Country: None (occurrence: None)
  Receive Date: 20110224
  Receipt Date: 20110216
  Transmission Date: 20110831
  Serious: Yes (Other)
  Sender: FDA-Public Use
  Company Number: PT-BAYER-2011-010514

PATIENT
  Sex: Female

DRUGS (4)
  1. BROMELAIN [Concomitant]
  2. BETAFERON [Suspect]
     Indication: MULTIPLE SCLEROSIS
     Dosage: UNK
     Route: 058
     Dates: start: 20080326
  3. REUMOXICAN [Concomitant]
     Dosage: 10 MG, UNK
  4. MELOXICAM [Concomitant]
     Dosage: 15 MG, UNK

REACTIONS (6)
  - INJECTION SITE ERYTHEMA [None]
  - GAIT DISTURBANCE [None]
  - INJECTION SITE PAIN [None]
  - INJECTION SITE ABSCESS [None]
  - INJECTION SITE WARMTH [None]
  - INJECTION SITE MASS [None]
